FAERS Safety Report 7189507-4 (Version None)
Quarter: 2010Q4

REPORT INFORMATION
  Report Type: 
  Country: None (occurrence: None)
  Receive Date: 20101223
  Receipt Date: 20101217
  Transmission Date: 20110411
  Serious: Yes (Other)
  Sender: FDA-Public Use
  Company Number: US-BIOGENIDEC-2010BI022380

PATIENT
  Age: 50 Year
  Sex: Female

DRUGS (4)
  1. AVONEX [Suspect]
     Indication: MULTIPLE SCLEROSIS
     Route: 030
     Dates: start: 19980101, end: 19990101
  2. AVONEX [Suspect]
     Route: 030
     Dates: start: 20091008
  3. TYSABRI [Concomitant]
     Indication: MULTIPLE SCLEROSIS
     Route: 042
     Dates: start: 20101025
  4. NEURONTIN [Concomitant]

REACTIONS (15)
  - CHILLS [None]
  - CONVULSION [None]
  - DISSOCIATION [None]
  - FALL [None]
  - FATIGUE [None]
  - GAIT DISTURBANCE [None]
  - GASTRITIS [None]
  - HYPOAESTHESIA [None]
  - MUSCLE SPASTICITY [None]
  - PAIN [None]
  - PAIN IN EXTREMITY [None]
  - PETIT MAL EPILEPSY [None]
  - PYREXIA [None]
  - VISION BLURRED [None]
  - VITAMIN B12 DECREASED [None]
